FAERS Safety Report 18289376 (Version 1)
Quarter: 2020Q3

REPORT INFORMATION
  Report Type: Spontaneous
  Country: FR (occurrence: FR)
  Receive Date: 20200921
  Receipt Date: 20200921
  Transmission Date: 20201103
  Serious: Yes (Hospitalization, Other)
  Sender: FDA-Public Use
  Company Number: FR-BRISTOL-MYERS SQUIBB COMPANY-BMS-2020-073834

PATIENT
  Age: 66 Year
  Sex: Male
  Weight: 73 kg

DRUGS (1)
  1. COUMADINE [Suspect]
     Active Substance: WARFARIN SODIUM
     Indication: PORTAL VEIN THROMBOSIS
     Dosage: UNK
     Route: 058
     Dates: start: 20200730, end: 20200814

REACTIONS (1)
  - Atheroembolism [Recovering/Resolving]

NARRATIVE: CASE EVENT DATE: 202008
